FAERS Safety Report 23767521 (Version 1)
Quarter: 2024Q2

REPORT INFORMATION
  Report Type: Spontaneous
  Country: US (occurrence: None)
  Receive Date: 20240422
  Receipt Date: 20240422
  Transmission Date: 20240716
  Serious: No
  Sender: FDA-Public Use
  Company Number: US-Encube-000678

PATIENT
  Age: 87 Year
  Sex: Female

DRUGS (1)
  1. PERMETHRIN [Suspect]
     Active Substance: PERMETHRIN
     Indication: Acarodermatitis
     Dates: start: 20240404, end: 20240404

REACTIONS (3)
  - Nausea [Unknown]
  - Dizziness [Unknown]
  - Erythema [Unknown]

NARRATIVE: CASE EVENT DATE: 20240409
